FAERS Safety Report 8469522-0 (Version None)
Quarter: 2012Q2

REPORT INFORMATION
  Report Type: 
  Country: None (occurrence: None)
  Receive Date: 20120626
  Receipt Date: 20110921
  Transmission Date: 20120825
  Serious: Yes (Death)
  Sender: FDA-Public Use
  Company Number: PHHY2011MA84764

PATIENT
  Age: 70 Year
  Sex: Female
  Weight: 70 kg

DRUGS (7)
  1. AUGMENTIN '125' [Concomitant]
     Dosage: UNK
  2. LEVOTHYROXINE SODIUM [Concomitant]
     Indication: HYPOTHYROIDISM
     Dosage: UNK
     Dates: start: 19950101
  3. MEDROL [Concomitant]
     Indication: ASTHMA
     Dosage: UNK
     Dates: start: 20091228, end: 20100106
  4. STATICOL [Concomitant]
     Indication: DYSLIPIDAEMIA
     Dosage: UNK
     Dates: start: 20090201
  5. VENTOLIN [Concomitant]
     Indication: ASTHMATIC CRISIS
     Dosage: UNK
     Dates: start: 20091218
  6. AMLODIPINE/VALSARTAN [Suspect]
     Indication: HYPERTENSION
     Dosage: VALS 160 MG AND AMLO 5 MG.
     Route: 048
     Dates: start: 20091012
  7. MIXTARD HUMAN 70/30 [Concomitant]
     Indication: TYPE 1 DIABETES MELLITUS
     Dosage: UNK UKN, UNK
     Dates: start: 20000301

REACTIONS (1)
  - DEATH [None]
